FAERS Safety Report 5019430-2 (Version None)
Quarter: 2006Q2

REPORT INFORMATION
  Report Type: 
  Country: None (occurrence: None)
  Receive Date: 20060531
  Receipt Date: 20060517
  Transmission Date: 20061013
  Serious: Yes (Life-Threatening, Hospitalization)
  Sender: FDA-Public Use
  Company Number: 29252

PATIENT
  Age: 77 Year
  Sex: Female

DRUGS (5)
  1. FLECAINIDE ACETATE [Suspect]
     Indication: ARRHYTHMIA
     Dosage: 200 MG (100 MG, 2 IN 1 DAY(S)) ORAL; SEE IMAGE
     Route: 048
     Dates: end: 20050922
  2. FLECAINIDE ACETATE [Suspect]
     Indication: ARRHYTHMIA
     Dosage: 200 MG (100 MG, 2 IN 1 DAY(S)) ORAL; SEE IMAGE
     Route: 048
     Dates: start: 20050101
  3. HYZAAR (LOSARTAN, HYDROCHLOROTHIAZIDE) [Concomitant]
  4. COZAAR [Concomitant]
  5. KARDEGIC (ACETEYLSALICYLATE LYSINE) [Concomitant]

REACTIONS (6)
  - BRADYCARDIA [None]
  - ELECTROCARDIOGRAM QT CORRECTED INTERVAL PROLONGED [None]
  - FRACTURED COCCYX [None]
  - MALAISE [None]
  - SYNCOPE [None]
  - TORSADE DE POINTES [None]
